FAERS Safety Report 18049777 (Version 1)
Quarter: 2020Q3

REPORT INFORMATION
  Report Type: Spontaneous
  Country: US (occurrence: US)
  Receive Date: 20200721
  Receipt Date: 20200721
  Transmission Date: 20201103
  Serious: Yes (Other)
  Sender: FDA-Public Use
  Company Number: US-ASTELLAS-2020US024169

PATIENT
  Age: 65 Year
  Sex: Male

DRUGS (4)
  1. REGADENOSON [Suspect]
     Active Substance: REGADENOSON
     Indication: CARDIAC PHARMACOLOGIC STRESS TEST
     Dosage: UNK UNK, UNKNOWN FREQ.
     Route: 065
  2. REGADENOSON [Suspect]
     Active Substance: REGADENOSON
     Indication: CARDIAC PHARMACOLOGIC STRESS TEST
     Dosage: UNK UNK, UNKNOWN FREQ.
     Route: 065
  3. REGADENOSON [Suspect]
     Active Substance: REGADENOSON
     Indication: CARDIAC PHARMACOLOGIC STRESS TEST
     Dosage: UNK UNK, UNKNOWN FREQ.
     Route: 065
  4. REGADENOSON [Suspect]
     Active Substance: REGADENOSON
     Indication: CARDIAC PHARMACOLOGIC STRESS TEST
     Dosage: UNK UNK, UNKNOWN FREQ.
     Route: 065

REACTIONS (2)
  - Electrocardiogram ST segment depression [Recovered/Resolved]
  - Electrocardiogram ST segment elevation [Recovered/Resolved]
